FAERS Safety Report 7921299-0 (Version None)
Quarter: 2011Q4

REPORT INFORMATION
  Report Type: 
  Country: None (occurrence: None)
  Receive Date: 20111117
  Receipt Date: 20111107
  Transmission Date: 20120403
  Serious: Yes (Hospitalization, Other)
  Sender: FDA-Public Use
  Company Number: US-BAYER-2011-006603

PATIENT
  Age: 29 Year
  Sex: Female
  Weight: 68.027 kg

DRUGS (20)
  1. YASMIN [Suspect]
  2. RANITIDINE [Concomitant]
  3. DROSPIRENONE AND ETHINYL ESTRADIOL [Suspect]
     Indication: PREMENSTRUAL SYNDROME
  4. DROSPIRENONE AND ETHINYL ESTRADIOL [Suspect]
  5. ZOLOFT [Concomitant]
  6. YASMIN [Suspect]
     Indication: PREMENSTRUAL SYNDROME
  7. DROSPIRENONE AND ETHINYL ESTRADIOL [Suspect]
     Indication: ORAL CONTRACEPTION
     Dosage: UNK
     Dates: start: 20071207, end: 20090701
  8. VITAMIN B12 NOS [Concomitant]
  9. YAZ [Suspect]
     Indication: ORAL CONTRACEPTION
     Dosage: UNK
     Dates: start: 20060101, end: 20060101
  10. YASMIN [Suspect]
     Indication: ORAL CONTRACEPTION
     Dosage: UNK
     Dates: start: 20070101, end: 20070101
  11. CYMBALTA [Concomitant]
  12. PERCOCET [Concomitant]
     Indication: PAIN
     Dosage: UNK UNK, PRN
  13. PRAVASTATIN SODIUM [Concomitant]
  14. VICODIN [Concomitant]
  15. PHENERGAN [Concomitant]
     Indication: NAUSEA
     Dosage: 25 MG, PRN
  16. ATIVAN [Concomitant]
  17. YAZ [Suspect]
     Indication: PREMENSTRUAL SYNDROME
  18. YAZ [Suspect]
  19. ACIPHEX [Concomitant]
  20. CHANTIX [Concomitant]

REACTIONS (8)
  - DEEP VEIN THROMBOSIS [None]
  - ABDOMINAL PAIN [None]
  - CHOLELITHIASIS [None]
  - BILIARY DYSKINESIA [None]
  - CHOLECYSTITIS CHRONIC [None]
  - PAIN [None]
  - THROMBOSIS [None]
  - GALLBLADDER DISORDER [None]
